FAERS Safety Report 6504727-7 (Version None)
Quarter: 2009Q4

REPORT INFORMATION
  Report Type: 
  Country: None (occurrence: None)
  Receive Date: 20091218
  Receipt Date: 20091029
  Transmission Date: 20100525
  Serious: No
  Sender: FDA-Public Use
  Company Number: A0814022A

PATIENT
  Age: 60 Year
  Sex: Male

DRUGS (6)
  1. TRIZIVIR [Suspect]
     Indication: HIV INFECTION
     Dosage: 300MG PER DAY
     Route: 048
     Dates: end: 20090801
  2. VIREAD [Suspect]
     Indication: ACQUIRED IMMUNODEFICIENCY SYNDROME
     Dosage: 300MG PER DAY
     Dates: end: 20090801
  3. STEROIDS [Suspect]
     Indication: ASTHMA
     Route: 065
  4. INSULIN [Concomitant]
  5. SYNTHROID [Concomitant]
  6. IBUPROFEN [Concomitant]

REACTIONS (1)
  - FAT REDISTRIBUTION [None]
